FAERS Safety Report 9167370 (Version 1)
Quarter: 2013Q1

REPORT INFORMATION
  Report Type: Spontaneous
  Country: CN (occurrence: None)
  Receive Date: 20130304
  Receipt Date: 20130304
  Transmission Date: 20140127
  Serious: Yes (Other)
  Sender: FDA-Public Use
  Company Number: 2013P1002566

PATIENT
  Age: 21 Year
  Sex: Male

DRUGS (3)
  1. METOPROLOL [Suspect]
     Indication: HYPERTENSION
     Dosage: 12.5 MG;BIDX5D;PO
  2. ISOSORBIDE MONONITRATE [Concomitant]
  3. AMLODIPINE [Concomitant]

REACTIONS (7)
  - Confusional state [None]
  - Disorientation [None]
  - Incoherent [None]
  - Hallucination, auditory [None]
  - Delirium [None]
  - Anxiety [None]
  - Altered state of consciousness [None]
